FAERS Safety Report 8032975-6 (Version None)
Quarter: 2012Q1

REPORT INFORMATION
  Report Type: 
  Country: None (occurrence: None)
  Receive Date: 20120110
  Receipt Date: 20111230
  Transmission Date: 20120608
  Serious: Yes (Hospitalization, Other)
  Sender: FDA-Public Use
  Company Number: US-ELI_LILLY_AND_COMPANY-US201112004307

PATIENT
  Sex: Female

DRUGS (4)
  1. SYNTHROID [Concomitant]
     Indication: THYROID DISORDER
  2. FORTEO [Suspect]
     Indication: OSTEOPOROSIS
     Dosage: 20 UG, QD
     Dates: start: 20111004
  3. VITAMINS NOS [Concomitant]
  4. MELOXICAM [Concomitant]
     Indication: ARTHRITIS

REACTIONS (3)
  - PELVIC FRACTURE [None]
  - FALL [None]
  - UPPER LIMB FRACTURE [None]
